FAERS Safety Report 10343687 (Version 7)
Quarter: 2016Q4

REPORT INFORMATION
  Report Type: Report from Study
  Country: US (occurrence: US)
  Receive Date: 20140725
  Receipt Date: 20161130
  Transmission Date: 20170206
  Serious: Yes (Life-Threatening, Hospitalization, Other)
  Sender: FDA-Public Use
  Company Number: US-ROCHE-1438192

PATIENT
  Age: 60 Year
  Sex: Female
  Weight: 51.82 kg

DRUGS (5)
  1. BEVACIZUMAB [Suspect]
     Active Substance: BEVACIZUMAB
     Indication: OVARIAN EPITHELIAL CANCER
     Dosage: OVER 30-90 MINS ON DAY 1?CYCLE 3 AS OF 19/JUN/14 (757 MG)
     Route: 042
     Dates: start: 20140501
  2. VELIPARIB [Suspect]
     Active Substance: VELIPARIB
     Indication: OVARIAN EPITHELIAL CANCER
     Dosage: ON DAYS 1-21 OF CYCLE 1?CYCLE 3 AS OF 19/JUN/14?1/JUL/2014 DOSE 1800 MG
     Route: 048
  3. PACLITAXEL. [Suspect]
     Active Substance: PACLITAXEL
     Dosage: ON DAY 8
     Route: 042
  4. PACLITAXEL. [Suspect]
     Active Substance: PACLITAXEL
     Indication: OVARIAN EPITHELIAL CANCER
     Dosage: CYCLE 3 AS OF 19/JUN/14?MOST RECENT DOSE 295 MG 26/JUN/2014
     Route: 042
     Dates: start: 20140501
  5. CISPLATIN. [Suspect]
     Active Substance: CISPLATIN
     Indication: OVARIAN EPITHELIAL CANCER
     Dosage: DAY 1 OR DAY 2?CYCLE 3 AS OF 19/JUN/14?MOST RECENT DOSE 113 MG 20/JUN/2014
     Route: 042
     Dates: start: 20140501

REACTIONS (32)
  - Soft tissue necrosis [Recovered/Resolved with Sequelae]
  - Pyrexia [Unknown]
  - Febrile neutropenia [Not Recovered/Not Resolved]
  - Alanine aminotransferase increased [Unknown]
  - Lung infection [Not Recovered/Not Resolved]
  - Hypotension [Recovered/Resolved]
  - Hypertension [Unknown]
  - Hyponatraemia [Unknown]
  - Dyspnoea [Unknown]
  - Blood bilirubin increased [Unknown]
  - Blood creatine phosphokinase increased [Unknown]
  - Aspartate aminotransferase increased [Unknown]
  - Platelet count decreased [Unknown]
  - Enterocolitis infectious [Unknown]
  - Neutrophil count decreased [Unknown]
  - Hypomagnesaemia [Not Recovered/Not Resolved]
  - Vomiting [Recovered/Resolved]
  - Anaemia [Unknown]
  - Hypophosphataemia [Unknown]
  - Hypoxia [Not Recovered/Not Resolved]
  - Diarrhoea [Recovered/Resolved]
  - White blood cell count decreased [Unknown]
  - Pneumonitis [Unknown]
  - Nausea [Recovered/Resolved]
  - Fatigue [Unknown]
  - Lymphocyte count decreased [Unknown]
  - Hypocalcaemia [Unknown]
  - Sepsis [Recovered/Resolved with Sequelae]
  - Dehydration [Not Recovered/Not Resolved]
  - Hypokalaemia [Not Recovered/Not Resolved]
  - Wheezing [Unknown]
  - Lung infection [Unknown]

NARRATIVE: CASE EVENT DATE: 20140507
